FAERS Safety Report 9233450 (Version 1)
Quarter: 2013Q2

REPORT INFORMATION
  Report Type: Report from Study
  Country: CO (occurrence: CO)
  Receive Date: 20130416
  Receipt Date: 20130416
  Transmission Date: 20140414
  Serious: Yes (Hospitalization)
  Sender: FDA-Public Use
  Company Number: CO-SANOFI-AVENTIS-2013SA038164

PATIENT
  Age: 58 Year
  Sex: Female

DRUGS (6)
  1. INSULIN GLARGINE [Suspect]
     Indication: DIABETES MELLITUS
     Route: 058
     Dates: start: 201204
  2. INSULIN GLULISINE [Suspect]
     Indication: DIABETES MELLITUS
     Route: 058
     Dates: start: 201204
  3. ACETAMINOPHEN [Concomitant]
     Indication: PAIN
     Route: 048
  4. FUROSEMIDE [Concomitant]
     Indication: HYPERTENSION
     Route: 048
  5. CLOPIDOGREL [Concomitant]
     Indication: CARDIAC DISORDER
     Route: 048
  6. RANITIDINE [Concomitant]
     Indication: PEPTIC ULCER
     Route: 048

REACTIONS (1)
  - Hip fracture [Recovering/Resolving]
